FAERS Safety Report 9121368 (Version 5)
Quarter: 2015Q2

REPORT INFORMATION
  Report Type: Spontaneous
  Country: US (occurrence: US)
  Receive Date: 20130225
  Receipt Date: 20150604
  Transmission Date: 20150821
  Serious: Yes (Hospitalization, Other)
  Sender: FDA-Public Use
  Company Number: US-BAYER-2013-021054

PATIENT
  Age: 31 Year
  Sex: Female

DRUGS (5)
  1. ACYCLOVIR [ACICLOVIR] [Concomitant]
     Active Substance: ACYCLOVIR
     Dosage: 400 MG, UNK
     Route: 048
  2. MIRENA [Suspect]
     Active Substance: LEVONORGESTREL
     Indication: CONTRACEPTION
     Dosage: 20 MCG/24HR, CONT
     Route: 015
     Dates: start: 20090115, end: 201111
  3. FIORICET [Concomitant]
     Active Substance: ACETAMINOPHEN\BUTALBITAL\CAFFEINE
     Dosage: 50-325-40 MG
     Route: 048
  4. COLACE [Concomitant]
     Active Substance: DOCUSATE SODIUM
     Dosage: 100 MG, UNK
     Route: 048
  5. NYSTATIN. [Concomitant]
     Active Substance: NYSTATIN
     Dosage: 100,000, UNITS/G
     Route: 061

REACTIONS (16)
  - Device dislocation [None]
  - Emotional distress [None]
  - Headache [None]
  - Anxiety [None]
  - Colon injury [None]
  - Pregnancy with contraceptive device [None]
  - Drug ineffective [None]
  - Abdominal pain lower [None]
  - Injury [None]
  - Psychogenic pain disorder [None]
  - Depression [None]
  - Anger [None]
  - Urticaria [None]
  - Uterine perforation [None]
  - Discomfort [None]
  - Anhedonia [None]

NARRATIVE: CASE EVENT DATE: 2011
